FAERS Safety Report 6991554-X (Version None)
Quarter: 2010Q3

REPORT INFORMATION
  Report Type: 
  Country: None (occurrence: None)
  Receive Date: 20100917
  Receipt Date: 20100908
  Transmission Date: 20110219
  Serious: No
  Sender: FDA-Public Use
  Company Number: US-BIOGENIDEC-2010BI030826

PATIENT
  Age: 55 Year
  Sex: Female

DRUGS (1)
  1. TYSABRI [Suspect]
     Indication: MULTIPLE SCLEROSIS
     Route: 042
     Dates: start: 20100423

REACTIONS (11)
  - BALANCE DISORDER [None]
  - CHILLS [None]
  - DIZZINESS [None]
  - DYSSTASIA [None]
  - FATIGUE [None]
  - HEMIPARESIS [None]
  - HYPOAESTHESIA [None]
  - NAUSEA [None]
  - VERTIGO [None]
  - VISION BLURRED [None]
  - VOMITING [None]
